FAERS Safety Report 15746934 (Version 1)
Quarter: 2018Q4

REPORT INFORMATION
  Report Type: Spontaneous
  Country: US (occurrence: US)
  Receive Date: 20181220
  Receipt Date: 20181220
  Transmission Date: 20190205
  Serious: Yes (Other)
  Sender: FDA-Public Use
  Company Number: US-THE MENTHOLATUM COMPANY-2060453

PATIENT
  Age: 41 Year
  Sex: Female

DRUGS (1)
  1. EQUATE COOL AND HEAT [Suspect]
     Active Substance: MENTHOL\METHYL SALICYLATE
     Indication: MUSCULOSKELETAL STIFFNESS
     Route: 061
     Dates: start: 20181128, end: 20181128

REACTIONS (3)
  - Rash [Recovering/Resolving]
  - Thermal burn [Recovering/Resolving]
  - Pain [Not Recovered/Not Resolved]

NARRATIVE: CASE EVENT DATE: 20181128
